FAERS Safety Report 21442670 (Version 2)
Quarter: 2022Q4

REPORT INFORMATION
  Report Type: Report from Study
  Country: US (occurrence: US)
  Receive Date: 20221012
  Receipt Date: 20221208
  Transmission Date: 20230112
  Serious: No
  Sender: FDA-Public Use
  Company Number: US-ABBVIE-4147888

PATIENT
  Age: 61 Year
  Sex: Male

DRUGS (3)
  1. SKYRIZI [Suspect]
     Active Substance: RISANKIZUMAB-RZAA
     Indication: Psoriasis
     Dosage: STRENGTH 150MG?WEEK 0
     Route: 058
     Dates: start: 20220910, end: 20220910
  2. SKYRIZI [Suspect]
     Active Substance: RISANKIZUMAB-RZAA
     Indication: Psoriatic arthropathy
     Dosage: STRENGTH: 150 MILLIGRAMS?WEEK 4
     Route: 058
  3. SKYRIZI [Suspect]
     Active Substance: RISANKIZUMAB-RZAA
     Dosage: STRENGTH:150 MILLIGRAMS
     Route: 058

REACTIONS (12)
  - Arthralgia [Unknown]
  - Chills [Unknown]
  - Weight decreased [Unknown]
  - Back pain [Unknown]
  - Pain [Unknown]
  - Loss of personal independence in daily activities [Unknown]
  - Loss of personal independence in daily activities [Unknown]
  - Back pain [Unknown]
  - Arthralgia [Unknown]
  - Dysstasia [Unknown]
  - Pain [Unknown]
  - Sitting disability [Unknown]

NARRATIVE: CASE EVENT DATE: 20220901
